FAERS Safety Report 5034518-8 (Version None)
Quarter: 2006Q2

REPORT INFORMATION
  Report Type: 
  Country: None (occurrence: None)
  Receive Date: 20060623
  Receipt Date: 20060623
  Transmission Date: 20061013
  Serious: Yes (Disabling)
  Sender: FDA-Public Use
  Company Number: None

PATIENT
  Age: 5 Year
  Sex: Male
  Weight: 18.06 kg

DRUGS (1)
  1. PHENERGAN [Suspect]
     Indication: GASTROENTERITIS
     Dosage: 6.25MG  1 DOSE IV BOLUS
     Route: 040
     Dates: start: 20060508, end: 20060508

REACTIONS (3)
  - ABNORMAL BEHAVIOUR [None]
  - CONVERSION DISORDER [None]
  - CRYING [None]
